FAERS Safety Report 12904590 (Version 1)
Quarter: 2016Q4

REPORT INFORMATION
  Report Type: Spontaneous
  Country: IS (occurrence: IS)
  Receive Date: 20161102
  Receipt Date: 20161102
  Transmission Date: 20170207
  Serious: Yes (Life-Threatening, Hospitalization, Other)
  Sender: FDA-Public Use
  Company Number: IS-PFIZER INC-2016254707

PATIENT
  Age: 29 Year
  Sex: Female
  Weight: 68 kg

DRUGS (3)
  1. AMOKSIKLAV [Concomitant]
     Active Substance: AMOXICILLIN\CLAVULANATE POTASSIUM
     Dosage: (AMOXICILLIN SODIUM 875MG/ CLAVULANATE POTASSIUM 125MG) AT 1 TABLET TWICE PER DAY
     Dates: start: 20150730, end: 20150731
  2. CELEBRA [Suspect]
     Active Substance: CELECOXIB
     Dosage: 200-600 MG DAILY
     Dates: start: 201602
  3. CELEBRA [Suspect]
     Active Substance: CELECOXIB
     Indication: FIBROMYALGIA
     Dosage: 200-600 MG DAILY
     Dates: start: 20121010, end: 20150731

REACTIONS (5)
  - Anaphylactic shock [Recovered/Resolved with Sequelae]
  - Pruritus [Recovered/Resolved with Sequelae]
  - Vomiting [Recovered/Resolved with Sequelae]
  - Dyspnoea [Recovered/Resolved with Sequelae]
  - Pharyngeal oedema [Recovered/Resolved with Sequelae]

NARRATIVE: CASE EVENT DATE: 20150731
